FAERS Safety Report 17688090 (Version 1)
Quarter: 2020Q2

REPORT INFORMATION
  Report Type: Spontaneous
  Country: US (occurrence: US)
  Receive Date: 20200417
  Receipt Date: 20200417
  Transmission Date: 20200714
  Serious: No
  Sender: FDA-Public Use
  Company Number: None

PATIENT
  Age: 67 Year
  Sex: Male

DRUGS (1)
  1. WARFARIN (WARFARIN NA (EXELAN) 5MG TAB [Suspect]
     Active Substance: WARFARIN SODIUM
     Indication: ATRIAL FIBRILLATION
     Dates: start: 20071012, end: 20180318

REACTIONS (5)
  - Contusion [None]
  - Muscle haemorrhage [None]
  - Internal haemorrhage [None]
  - Anticoagulation drug level above therapeutic [None]
  - Back pain [None]

NARRATIVE: CASE EVENT DATE: 20180318
